FAERS Safety Report 19026935 (Version 2)
Quarter: 2021Q1

REPORT INFORMATION
  Report Type: Report from Study
  Country: CA (occurrence: CA)
  Receive Date: 20210318
  Receipt Date: 20210319
  Transmission Date: 20210420
  Serious: Yes (Other)
  Sender: FDA-Public Use
  Company Number: CA-HLS-202107182

PATIENT
  Sex: Male

DRUGS (1)
  1. CLOZARIL [Suspect]
     Active Substance: CLOZAPINE
     Indication: PRODUCT USED FOR UNKNOWN INDICATION
     Route: 048
     Dates: start: 20200812

REACTIONS (4)
  - Neutrophil count increased [Unknown]
  - Thrombocytopenia [Unknown]
  - White blood cell count increased [Unknown]
  - Urinary tract infection [Unknown]
